FAERS Safety Report 24279391 (Version 1)
Quarter: 2024Q3

REPORT INFORMATION
  Report Type: Report from Study
  Country: CO (occurrence: CO)
  Receive Date: 20240903
  Receipt Date: 20240903
  Transmission Date: 20241017
  Serious: Yes (Other)
  Sender: ABBVIE
  Company Number: CO-ABBVIE-5901137

PATIENT
  Age: 69 Year
  Sex: Male
  Weight: 77 kg

DRUGS (1)
  1. SKYRIZI [Suspect]
     Active Substance: RISANKIZUMAB-RZAA
     Indication: Psoriasis
     Dosage: FORM STRENGTH UNITS: 150 MILLIGRAM
     Route: 058
     Dates: start: 20231025, end: 20240426

REACTIONS (9)
  - Myocardial infarction [Unknown]
  - Inflammation [Unknown]
  - Stress [Unknown]
  - Blood glucose increased [Not Recovered/Not Resolved]
  - Angina pectoris [Unknown]
  - Malaise [Unknown]
  - Pain [Not Recovered/Not Resolved]
  - Weight increased [Not Recovered/Not Resolved]
  - Discomfort [Not Recovered/Not Resolved]

NARRATIVE: CASE EVENT DATE: 20240701
